FAERS Safety Report 7480777-1 (Version None)
Quarter: 2011Q2

REPORT INFORMATION
  Report Type: 
  Country: None (occurrence: None)
  Receive Date: 20110516
  Receipt Date: 20110512
  Transmission Date: 20111010
  Serious: Yes (Other)
  Sender: FDA-Public Use
  Company Number: US-BAYER-2011-041032

PATIENT
  Sex: Female

DRUGS (2)
  1. DROSPIRENONE AND ETHINYL ESTRADIOL [Suspect]
  2. YASMIN [Suspect]

REACTIONS (7)
  - ANXIETY [None]
  - CHOLELITHIASIS [None]
  - INJURY [None]
  - ANHEDONIA [None]
  - FEAR [None]
  - CHOLECYSTITIS [None]
  - PAIN [None]
